FAERS Safety Report 7636752-7 (Version None)
Quarter: 2011Q3

REPORT INFORMATION
  Report Type: 
  Country: None (occurrence: None)
  Receive Date: 20110726
  Receipt Date: 20110722
  Transmission Date: 20111222
  Serious: Yes (Other)
  Sender: FDA-Public Use
  Company Number: US-TEVA-291938USA

PATIENT
  Sex: Male
  Weight: 4.041 kg

DRUGS (2)
  1. AMOXICILLIN [Suspect]
     Indication: LYME DISEASE
     Dosage: 1500 MILLIGRAM;
     Route: 064
  2. VALACYCLOVIR HYDROCHLORIDE [Concomitant]
     Dates: start: 20080101

REACTIONS (4)
  - DEVELOPMENTAL DELAY [None]
  - ATAXIA [None]
  - HYPOTONIA [None]
  - MATERNAL DRUGS AFFECTING FOETUS [None]
